FAERS Safety Report 5644257-8 (Version None)
Quarter: 2008Q1

REPORT INFORMATION
  Report Type: 
  Country: None (occurrence: None)
  Receive Date: 20080227
  Receipt Date: 20080219
  Transmission Date: 20080703
  Serious: Yes (Death)
  Sender: FDA-Public Use
  Company Number: 2007US000449

PATIENT
  Age: 59 Year
  Sex: Female
  Weight: 43.1 kg

DRUGS (16)
  1. PROGRAF [Suspect]
     Indication: PROPHYLAXIS AGAINST TRANSPLANT REJECTION
     Dosage: 1 MG, UID/QD, ORAL
     Route: 048
     Dates: start: 20030710, end: 20050507
  2. AZATHIOPRINE [Concomitant]
  3. CIPRO [Concomitant]
  4. PERCOCET [Concomitant]
  5. LEXAPRO [Concomitant]
  6. AVAPRO [Concomitant]
  7. CYPROHEPTADINE HCL [Concomitant]
  8. MEGACE [Concomitant]
  9. PREDNISOLONE ACETATE [Concomitant]
  10. XANAX [Concomitant]
  11. SIMETHICONE (SIMETICONE) [Concomitant]
  12. LACTINEX (LACTOBACILLUS ACIDOPHILUS, LACTOBACILLUS BULGARICUS) [Concomitant]
  13. SYNTHROID [Concomitant]
  14. COMBIVENT (IPRATROPIUM BROMIDE) [Concomitant]
  15. IMODIUM [Concomitant]
  16. TYLENOL EXTRA-STRENGTH [Concomitant]

REACTIONS (9)
  - APNOEA [None]
  - BREATH SOUNDS ABSENT [None]
  - ENTEROCUTANEOUS FISTULA [None]
  - FALL [None]
  - IMMUNOSUPPRESSION [None]
  - INFECTION [None]
  - LUNG TRANSPLANT REJECTION [None]
  - PUPIL FIXED [None]
  - RESPIRATORY DISTRESS [None]
